FAERS Safety Report 7311193-0 (Version None)
Quarter: 2011Q1

REPORT INFORMATION
  Report Type: 
  Country: None (occurrence: None)
  Receive Date: 20110224
  Receipt Date: 20110221
  Transmission Date: 20110831
  Serious: Yes (Hospitalization)
  Sender: FDA-Public Use
  Company Number: CO-ROCHE-760979

PATIENT
  Sex: Female

DRUGS (2)
  1. MIRCERA [Suspect]
     Route: 058
     Dates: start: 20100610
  2. PREDNISOLONE [Concomitant]
     Indication: INFLAMMATION
     Dosage: INDICATION WAS REPORTED AS ANTIINFLAMATION
     Route: 048

REACTIONS (1)
  - ABDOMINAL PAIN [None]
